FAERS Safety Report 8869844 (Version 2)
Quarter: 2012Q4

REPORT INFORMATION
  Report Type: Spontaneous
  Country: US (occurrence: None)
  Receive Date: 20121025
  Receipt Date: 20121025
  Transmission Date: 20130627
  Serious: Yes (Life-Threatening, Hospitalization)
  Sender: FDA-Public Use
  Company Number: None

PATIENT
  Sex: Female
  Weight: 45.41 kg

DRUGS (1)
  1. RIVAROXABAN [Suspect]
     Indication: VENOUS THROMBOEMBOLISM PROPHYLAXIS
     Dosage: 10 mg Daily po
     Route: 048
     Dates: start: 20121002, end: 20121005

REACTIONS (1)
  - Pulmonary embolism [None]
